FAERS Safety Report 21756326 (Version 1)
Quarter: 2022Q4

REPORT INFORMATION
  Report Type: Spontaneous
  Country: US (occurrence: US)
  Receive Date: 20221220
  Receipt Date: 20221220
  Transmission Date: 20230113
  Serious: No
  Sender: FDA-Public Use
  Company Number: US-ROMARKLABS-2022-US-000022

PATIENT
  Age: 1 Year
  Sex: Male

DRUGS (1)
  1. ALINIA [Suspect]
     Active Substance: NITAZOXANIDE
     Indication: Helicobacter infection
     Dosage: 1 TABLET TWICE DAILY
     Route: 048
     Dates: start: 2022

REACTIONS (2)
  - Abdominal pain [Recovered/Resolved]
  - Incorrect product dosage form administered [Recovered/Resolved]

NARRATIVE: CASE EVENT DATE: 20220101
